FAERS Safety Report 21631929 (Version 1)
Quarter: 2022Q4

REPORT INFORMATION
  Report Type: Spontaneous
  Country: US (occurrence: US)
  Receive Date: 20221123
  Receipt Date: 20221123
  Transmission Date: 20230113
  Serious: Yes (Life-Threatening, Other)
  Sender: FDA-Public Use
  Company Number: US-drreddys-LIT/USA/22/0157505

PATIENT
  Age: 78 Year
  Sex: Male

DRUGS (5)
  1. ABIRATERONE [Suspect]
     Active Substance: ABIRATERONE
     Indication: Neuroendocrine cancer of the prostate metastatic
  2. PREDNISONE [Suspect]
     Active Substance: PREDNISONE
     Indication: Neuroendocrine cancer of the prostate metastatic
  3. CABAZITAXEL [Suspect]
     Active Substance: CABAZITAXEL
     Indication: Neuroendocrine cancer of the prostate metastatic
  4. DURVALUMAB [Suspect]
     Active Substance: DURVALUMAB
     Indication: Neuroendocrine cancer of the prostate metastatic
  5. ENZALUTAMIDE [Concomitant]
     Active Substance: ENZALUTAMIDE
     Indication: Hormone-refractory prostate cancer

REACTIONS (5)
  - Drug ineffective [Unknown]
  - Soft tissue mass [Unknown]
  - Prostate cancer stage IV [Unknown]
  - Disease progression [Unknown]
  - Bladder mass [Unknown]
